FAERS Safety Report 4847186-2 (Version None)
Quarter: 2005Q4

REPORT INFORMATION
  Report Type: 
  Country: None (occurrence: None)
  Receive Date: 20051207
  Receipt Date: 20051005
  Transmission Date: 20060501
  Serious: Yes (Hospitalization, Disabling)
  Sender: FDA-Public Use
  Company Number: US-MERCK-0510USA04833

PATIENT
  Age: 74 Year
  Sex: Female
  Weight: 89 kg

DRUGS (1)
  1. VIOXX [Suspect]
     Indication: PAIN
     Route: 048
     Dates: start: 20020101, end: 20040930

REACTIONS (5)
  - ABDOMINAL PAIN UPPER [None]
  - ANGINA UNSTABLE [None]
  - CARDIAC DISORDER [None]
  - HYPERTENSION [None]
  - HYPOKINESIA [None]
